FAERS Safety Report 6094265-0 (Version None)
Quarter: 2009Q1

REPORT INFORMATION
  Report Type: 
  Country: None (occurrence: None)
  Receive Date: 20090219
  Receipt Date: 20081111
  Transmission Date: 20090719
  Serious: No
  Sender: FDA-Public Use
  Company Number: WAES 0811USA01749

PATIENT
  Age: 80 Year
  Sex: Male

DRUGS (5)
  1. JANUVIA [Suspect]
     Indication: DIABETES MELLITUS
     Dosage: 50 MG DAILY PO
     Route: 048
     Dates: start: 20081011
  2. COUMADIN [Concomitant]
  3. LIPITOR [Concomitant]
  4. PEPCID [Concomitant]
  5. TOPROL-XL [Concomitant]

REACTIONS (1)
  - ANOREXIA [None]
